FAERS Safety Report 20385011 (Version 1)
Quarter: 2022Q1

REPORT INFORMATION
  Report Type: Spontaneous
  Country: JP (occurrence: JP)
  Receive Date: 20220127
  Receipt Date: 20220127
  Transmission Date: 20220423
  Serious: Yes (Other)
  Sender: FDA-Public Use
  Company Number: JP-CELGENE-JPN-20210602305

PATIENT
  Age: 49 Year
  Sex: Male

DRUGS (1)
  1. VIDAZA [Suspect]
     Active Substance: AZACITIDINE
     Indication: Chronic myelomonocytic leukaemia
     Dosage: 120 MILLIGRAM
     Route: 041
     Dates: start: 20210531

REACTIONS (2)
  - Jaundice [Unknown]
  - Rash [Unknown]

NARRATIVE: CASE EVENT DATE: 20210601
